FAERS Safety Report 16042768 (Version 1)
Quarter: 2019Q2

REPORT INFORMATION
  Report Type: Spontaneous
  Country: US (occurrence: US)
  Receive Date: 20190306
  Receipt Date: 20190306
  Transmission Date: 20190711
  Serious: Yes (Hospitalization)
  Sender: FDA-Public Use
  Company Number: None

PATIENT
  Age: 42 Year
  Sex: Female

DRUGS (1)
  1. TOCILIZUMAB. [Suspect]
     Active Substance: TOCILIZUMAB
     Indication: RHEUMATOID ARTHRITIS
     Dosage: ?          OTHER FREQUENCY:EVERY 4 WEEKS;?
     Route: 041
     Dates: start: 20150730, end: 20190109

REACTIONS (6)
  - Hypoaesthesia [None]
  - Hypertension [None]
  - Rash macular [None]
  - Palpitations [None]
  - Infusion related reaction [None]
  - Tachycardia [None]

NARRATIVE: CASE EVENT DATE: 20190109
